FAERS Safety Report 4848458-8 (Version None)
Quarter: 2005Q4

REPORT INFORMATION
  Report Type: 
  Country: None (occurrence: None)
  Receive Date: 20051115
  Receipt Date: 20050815
  Transmission Date: 20060501
  Serious: No
  Sender: FDA-Public Use
  Company Number: S05-USA-04033-01

PATIENT
  Age: 91 Year
  Sex: Female

DRUGS (7)
  1. NAMENDA [Suspect]
     Indication: DEMENTIA ALZHEIMER'S TYPE
     Dates: start: 20050615
  2. ARICEPT [Concomitant]
  3. ZOLOFT [Concomitant]
  4. LASIX [Concomitant]
  5. WARFARIN SODIUM [Concomitant]
  6. CELEBREX [Concomitant]
  7. POTASSIUM (POTASSIUM) [Concomitant]

REACTIONS (2)
  - HALLUCINATION, AUDITORY [None]
  - HALLUCINATION, VISUAL [None]
